FAERS Safety Report 20763488 (Version 2)
Quarter: 2022Q2

REPORT INFORMATION
  Report Type: Spontaneous
  Country: DE (occurrence: DE)
  Receive Date: 20220428
  Receipt Date: 20220505
  Transmission Date: 20220720
  Serious: Yes (Life-Threatening, Hospitalization, Other)
  Sender: FDA-Public Use
  Company Number: DE-BAYER-2022A062085

PATIENT
  Age: 47 Year
  Sex: Female
  Weight: 65 kg

DRUGS (5)
  1. GADOBUTROL [Suspect]
     Active Substance: GADOBUTROL
     Indication: Magnetic resonance imaging
     Dosage: APPLICATION OF 5 ML GADOVIST - APPLICATION DISCONTINUED
     Dates: start: 20220412, end: 20220412
  2. GADOBUTROL [Suspect]
     Active Substance: GADOBUTROL
     Indication: Meniscopathy
  3. GADOBUTROL [Suspect]
     Active Substance: GADOBUTROL
     Indication: Chondropathy
  4. GADOBUTROL [Suspect]
     Active Substance: GADOBUTROL
     Indication: Osteomyelitis
  5. GADOBUTROL [Suspect]
     Active Substance: GADOBUTROL
     Indication: Bone infarction

REACTIONS (7)
  - Cardiac arrest [Recovered/Resolved]
  - Pulmonary pain [None]
  - Seizure [None]
  - Loss of consciousness [None]
  - Bronchospasm [Recovered/Resolved]
  - Cyanosis [Recovered/Resolved]
  - Coma [Recovered/Resolved]

NARRATIVE: CASE EVENT DATE: 20220412
